FAERS Safety Report 16070919 (Version 2)
Quarter: 2019Q1

REPORT INFORMATION
  Report Type: Spontaneous
  Country: US (occurrence: US)
  Receive Date: 20190314
  Receipt Date: 20190327
  Transmission Date: 20190418
  Serious: Yes (Hospitalization)
  Sender: FDA-Public Use
  Company Number: US-TORRENT-00007807

PATIENT
  Age: 48 Year
  Sex: Male

DRUGS (9)
  1. NUCYNTA [Suspect]
     Active Substance: TAPENTADOL HYDROCHLORIDE
     Indication: BACK PAIN
     Dosage: IMMEDIATE-RELEASE TABLETS, INITIATED SEVERAL MONTHS PRIOR TO INCIDENT
     Route: 048
  2. ELAVIL [Suspect]
     Active Substance: AMITRIPTYLINE HYDROCHLORIDE
     Indication: MAJOR DEPRESSION
     Dosage: EVERY 12 HOURS INITIATED 3-4 DAYS, 2-3 TABLETS PRIOR TO INCIDENT, 1 TABLET IN THE MORNING
     Route: 048
  3. VASOTEC [Suspect]
     Active Substance: ENALAPRIL MALEATE
     Indication: HYPERTENSION
     Dosage: INITIATED 1 YEAR AGO; SOMETIMES NONADHERENT
     Route: 048
  4. TENORMIN [Suspect]
     Active Substance: ATENOLOL
     Indication: HYPERTENSION
     Dosage: INITIATED 1 YEAR AGO; SOMETIMES NONADHERENT
     Route: 048
  5. METHADOSE [Concomitant]
     Active Substance: METHADONE HYDROCHLORIDE
     Indication: PAIN
     Dosage: STOPPED ONCE TAPENTADOL WAS INITIATED
     Route: 048
  6. OXYCONTIN [Concomitant]
     Active Substance: OXYCODONE HYDROCHLORIDE
     Indication: PRODUCT USED FOR UNKNOWN INDICATION
     Dosage: FOR AN EXTENDED PERIOD, UNSURE OF TIMELINE
  7. DULOXETINE. [Suspect]
     Active Substance: DULOXETINE
     Indication: PAIN
     Dosage: QAM OR QHS, INITIATED 1 YEAR AGO; SOMETIMES NONADHERENT
     Route: 048
  8. NEXIUM [Concomitant]
     Active Substance: ESOMEPRAZOLE MAGNESIUM
     Indication: GASTROOESOPHAGEAL REFLUX DISEASE
     Dosage: INITIATED 1 YEAR AGO; DOES NOT TAKE EVERYDAY
     Route: 048
  9. ZOCOR [Suspect]
     Active Substance: SIMVASTATIN
     Indication: HYPERLIPIDAEMIA
     Dosage: QHS, INITIATED 1 YEAR AGO, SOMETIMES NONADHERENT
     Route: 048

REACTIONS (5)
  - Serotonin syndrome [Recovered/Resolved]
  - Unresponsive to stimuli [Recovered/Resolved]
  - Overdose [Recovered/Resolved]
  - Mental status changes [Recovered/Resolved]
  - Treatment noncompliance [Unknown]
